FAERS Safety Report 4344427-5 (Version None)
Quarter: 2004Q2

REPORT INFORMATION
  Report Type: 
  Country: None (occurrence: None)
  Receive Date: 20040419
  Receipt Date: 20040405
  Transmission Date: 20050107
  Serious: No
  Sender: FDA-Public Use
  Company Number: 04P-144-0256064-00

PATIENT
  Age: 35 Year
  Sex: Female

DRUGS (2)
  1. MERIDIA [Suspect]
     Indication: OBESITY
     Dates: start: 20010501, end: 20020101
  2. BETA BLOCKING AGENTS [Concomitant]

REACTIONS (2)
  - ABDOMINAL PAIN [None]
  - HEREDITARY ANGIOEDEMA [None]
